FAERS Safety Report 23680289 (Version 9)
Quarter: 2024Q4

REPORT INFORMATION
  Report Type: Report from Study
  Country: CA (occurrence: CA)
  Receive Date: 20240328
  Receipt Date: 20241210
  Transmission Date: 20250114
  Serious: Yes (Other)
  Sender: GLAXOSMITHKLINE
  Company Number: CA-GLAXOSMITHKLINE-CA2024037359

PATIENT

DRUGS (10)
  1. MEPOLIZUMAB [Suspect]
     Active Substance: MEPOLIZUMAB
     Indication: Asthma
     Dosage: 100 MG, Q4W
     Route: 058
     Dates: start: 20170901
  2. MEPOLIZUMAB [Suspect]
     Active Substance: MEPOLIZUMAB
     Dosage: 100 MG, Q4W
     Route: 058
  3. MEPOLIZUMAB [Suspect]
     Active Substance: MEPOLIZUMAB
     Indication: Asthma
     Dosage: 100 MG, Q4W
     Route: 058
  4. ADVAIR HFA [Concomitant]
     Active Substance: FLUTICASONE PROPIONATE\SALMETEROL XINAFOATE
     Indication: Product used for unknown indication
     Dosage: 2 PUFF(S), BID, 500MCG, APPROX. 15 YEARS
  5. ALVESCO [Concomitant]
     Active Substance: CICLESONIDE
     Indication: Product used for unknown indication
     Dosage: 1 PUFF(S), QD, APPR 10 YEARS
  6. SPIRIVA [Concomitant]
     Active Substance: TIOTROPIUM BROMIDE MONOHYDRATE
     Indication: Product used for unknown indication
     Dosage: 1 PUFF(S), QD, APPR 10YRS
  7. VENTOLIN [Concomitant]
     Active Substance: ALBUTEROL SULFATE
     Indication: Product used for unknown indication
     Dosage: UNK, RESCUE MEDS (APPROX 30 YEARS)
  8. ZOPICLONE [Concomitant]
     Active Substance: ZOPICLONE
     Indication: Product used for unknown indication
     Dosage: 7.5 MG, (20YRS)
     Route: 048
  9. PREDNISONE [Concomitant]
     Active Substance: PREDNISONE
     Indication: Product used for unknown indication
     Dosage: 5 MG, STARTED AUG18 FOR 5 DAYS COURSE
     Route: 048
  10. BUTYLSCOPOLAMINE BROMIDE [Concomitant]
     Active Substance: BUTYLSCOPOLAMINE BROMIDE
     Indication: Product used for unknown indication
     Dosage: UNK, PRN
     Dates: start: 2009

REACTIONS (8)
  - Pneumonia [Unknown]
  - Influenza [Not Recovered/Not Resolved]
  - Laryngitis [Unknown]
  - Injection site pain [Unknown]
  - Injection site bruising [Recovered/Resolved]
  - Pain in extremity [Unknown]
  - Myalgia [Unknown]
  - Movement disorder [Unknown]
